FAERS Safety Report 23798142 (Version 6)
Quarter: 2024Q4

REPORT INFORMATION
  Report Type: Spontaneous
  Country: US (occurrence: US)
  Receive Date: 20240430
  Receipt Date: 20241024
  Transmission Date: 20250115
  Serious: No
  Sender: PFIZER
  Company Number: US-PFIZER INC-202400095019

PATIENT
  Age: 14 Year
  Sex: Male

DRUGS (1)
  1. GENOTROPIN [Suspect]
     Active Substance: SOMATROPIN
     Dosage: 2.4 MG, DAILY

REACTIONS (8)
  - Device issue [Unknown]
  - Device use issue [Unknown]
  - Drug dose omission by device [Unknown]
  - Intentional product use issue [Unknown]
  - Poor quality device used [Unknown]
  - Device physical property issue [Unknown]
  - Device malfunction [Unknown]
  - Device delivery system issue [Unknown]
